FAERS Safety Report 6888262-2 (Version None)
Quarter: 2010Q3

REPORT INFORMATION
  Report Type: 
  Country: None (occurrence: None)
  Receive Date: 20100730
  Receipt Date: 20100720
  Transmission Date: 20110219
  Serious: Yes (Other)
  Sender: FDA-Public Use
  Company Number: US-TEVA-242169USA

PATIENT
  Sex: Female

DRUGS (1)
  1. CLARAVIS [Suspect]
     Dosage: TEN 40MG CAPSULES PER WEEK
     Dates: start: 20100217, end: 20100720

REACTIONS (1)
  - UNINTENDED PREGNANCY [None]
